FAERS Safety Report 7555781-5 (Version None)
Quarter: 2011Q2

REPORT INFORMATION
  Report Type: 
  Country: None (occurrence: None)
  Receive Date: 20110618
  Receipt Date: 20110602
  Transmission Date: 20111010
  Serious: Yes (Other)
  Sender: FDA-Public Use
  Company Number: US-BAYER-2011-048293

PATIENT
  Age: 77 Year
  Sex: Female
  Weight: 63 kg

DRUGS (2)
  1. BAYER EXTRA STRENGTH BACK + BODY PAIN [Suspect]
     Dosage: BOTTLE COUNT 50S
     Route: 048
     Dates: start: 20110401
  2. BAYER EXTRA STRENGTH BACK + BODY PAIN [Suspect]
     Indication: BACK PAIN
     Dosage: BOTTLE COUNT WAS NOT REPORTED
     Route: 048
     Dates: start: 20050101, end: 20110401

REACTIONS (4)
  - MOUTH HAEMORRHAGE [None]
  - GASTRITIS [None]
  - PRURITUS [None]
  - DEAFNESS [None]
